FAERS Safety Report 24555555 (Version 1)
Quarter: 2024Q4

REPORT INFORMATION
  Report Type: Spontaneous
  Country: US (occurrence: None)
  Receive Date: 20241025
  Receipt Date: 20241025
  Transmission Date: 20250115
  Serious: Yes (Other)
  Sender: Public
  Company Number: None

PATIENT
  Age: 78 Year
  Sex: Female

DRUGS (1)
  1. CAPECITABINE [Suspect]
     Active Substance: CAPECITABINE
     Dates: start: 20231229, end: 20241023

REACTIONS (3)
  - Hypoaesthesia [None]
  - Therapy cessation [None]
  - Memory impairment [None]

NARRATIVE: CASE EVENT DATE: 20241023
